FAERS Safety Report 17230486 (Version 2)
Quarter: 2020Q1

REPORT INFORMATION
  Report Type: Spontaneous
  Country: JP (occurrence: JP)
  Receive Date: 20200103
  Receipt Date: 20200305
  Transmission Date: 20200409
  Serious: Yes (Other)
  Sender: FDA-Public Use
  Company Number: JP-BAUSCH-BL-2020-000151

PATIENT
  Age: 71 Year
  Sex: Female

DRUGS (1)
  1. VERTEPORFIN [Suspect]
     Active Substance: VERTEPORFIN
     Indication: AGE-RELATED MACULAR DEGENERATION
     Dosage: DOSE: UNKNOWN MG
     Route: 042
     Dates: start: 20180228

REACTIONS (3)
  - Disease progression [Unknown]
  - Age-related macular degeneration [Unknown]
  - Polypoidal choroidal vasculopathy [Not Recovered/Not Resolved]

NARRATIVE: CASE EVENT DATE: 20181120
